FAERS Safety Report 6204014-0 (Version None)
Quarter: 2009Q2

REPORT INFORMATION
  Report Type: 
  Country: None (occurrence: None)
  Receive Date: 20090527
  Receipt Date: 20081127
  Transmission Date: 20091009
  Serious: Yes (Death, Hospitalization)
  Sender: FDA-Public Use
  Company Number: GB-PFIZER INC-2008101147

PATIENT
  Age: 18 Year
  Sex: Female
  Weight: 55 kg

DRUGS (6)
  1. PHENYTOIN AND PHENYTOIN SODIUM [Suspect]
  2. GENTAMICIN SULFATE [Suspect]
  3. ACYCLOVIR [Suspect]
  4. CEFOTAXIME [Suspect]
     Indication: MENINGITIS
  5. PIPERACILLIN SODIUM AND TAZOBACTAM SODIUM [Suspect]
     Indication: LOWER RESPIRATORY TRACT INFECTION
  6. PREDNISOLONE [Concomitant]

REACTIONS (1)
  - TOXIC EPIDERMAL NECROLYSIS [None]
